FAERS Safety Report 25362899 (Version 2)
Quarter: 2025Q2

REPORT INFORMATION
  Report Type: Spontaneous
  Country: JP (occurrence: JP)
  Receive Date: 20250527
  Receipt Date: 20250617
  Transmission Date: 20250716
  Serious: Yes (Hospitalization, Other)
  Sender: ALEXION PHARMACEUTICALS
  Company Number: JP-ASTRAZENECA-250049994_013120_P_1

PATIENT
  Age: 75 Year
  Weight: 60 kg

DRUGS (19)
  1. DURVALUMAB [Suspect]
     Active Substance: DURVALUMAB
     Indication: Hepatocellular carcinoma
     Dosage: 1500 MILLIGRAM, Q4W
  2. DURVALUMAB [Suspect]
     Active Substance: DURVALUMAB
     Dosage: 1500 MILLIGRAM, Q4W
  3. TREMELIMUMAB [Suspect]
     Active Substance: TREMELIMUMAB
     Indication: Hepatocellular carcinoma
  4. LANSOPRAZOLE [Concomitant]
     Active Substance: LANSOPRAZOLE
  5. FEBUXOSTAT [Concomitant]
     Active Substance: FEBUXOSTAT
  6. FEBUXOSTAT [Concomitant]
     Active Substance: FEBUXOSTAT
  7. ASPIRIN [Concomitant]
     Active Substance: ASPIRIN
  8. AMLODIPINE BESYLATE\IRBESARTAN [Concomitant]
     Active Substance: AMLODIPINE BESYLATE\IRBESARTAN
  9. METHYLCOBALAMIN [Concomitant]
     Active Substance: METHYLCOBALAMIN
     Dosage: AFTER BREAKFAST
  10. TEPRENONE [Concomitant]
     Active Substance: TEPRENONE
     Dosage: AFTER BREAKFAST
  11. Atolant [Concomitant]
     Route: 065
  12. RINDERON [Concomitant]
  13. RINDERON [Concomitant]
  14. URSODIOL [Concomitant]
     Active Substance: URSODIOL
     Dosage: AFTER BREAKFAST, LUNCH, AND DINNER
  15. PRANOPROFEN [Concomitant]
     Active Substance: PRANOPROFEN
  16. PIRENOXINE [Concomitant]
     Active Substance: PIRENOXINE
  17. HYALURONATE SODIUM [Concomitant]
     Active Substance: HYALURONATE SODIUM
  18. Myser [Concomitant]
  19. DIPHENHYDRAMINE [Concomitant]
     Active Substance: DIPHENHYDRAMINE

REACTIONS (4)
  - Blood creatine phosphokinase increased [Recovering/Resolving]
  - Cardiomyopathy [Unknown]
  - Immune-mediated myositis [Unknown]
  - Myasthenia gravis [Unknown]
